FAERS Safety Report 24174821 (Version 1)
Quarter: 2024Q3

REPORT INFORMATION
  Report Type: Report from Study
  Country: CA (occurrence: CA)
  Receive Date: 20240805
  Receipt Date: 20240805
  Transmission Date: 20241017
  Serious: Yes (Death, Hospitalization)
  Sender: BAYER
  Company Number: CA-BAYER-2024A085477

PATIENT
  Age: 30 Year
  Sex: Female

DRUGS (7)
  1. ADEMPAS [Suspect]
     Active Substance: RIOCIGUAT
     Indication: Pulmonary arterial hypertension
     Dosage: 2.5 MG, TID
     Dates: start: 20160219, end: 20240729
  2. EPOPROSTENOL [Concomitant]
     Active Substance: EPOPROSTENOL
  3. OPSUMIT [Concomitant]
     Active Substance: MACITENTAN
  4. LEVOTHYROXINE [Concomitant]
     Active Substance: LEVOTHYROXINE\LEVOTHYROXINE SODIUM
  5. WARFARIN [Concomitant]
     Active Substance: WARFARIN
  6. IUD NOS [Concomitant]
     Active Substance: COPPER OR LEVONORGESTREL
  7. ADALAT PA [Concomitant]

REACTIONS (3)
  - Death [Fatal]
  - Hospitalisation [None]
  - Therapy cessation [None]
